FAERS Safety Report 7137143-8 (Version None)
Quarter: 2010Q4

REPORT INFORMATION
  Report Type: 
  Country: None (occurrence: None)
  Receive Date: 20101206
  Receipt Date: 20101117
  Transmission Date: 20110411
  Serious: No
  Sender: FDA-Public Use
  Company Number: JP-JNJFOC-20101201193

PATIENT
  Sex: Female
  Weight: 45 kg

DRUGS (11)
  1. DUROTEP MT PATCH [Suspect]
     Indication: PAIN
     Route: 062
  2. EPAND [Concomitant]
     Route: 048
  3. NORVASC [Concomitant]
     Route: 048
  4. LIPODOWN [Concomitant]
     Route: 048
  5. AVAPRO [Concomitant]
     Route: 048
  6. NAUZELIN [Concomitant]
     Indication: PROPHYLAXIS
     Route: 048
  7. MAGLAX [Concomitant]
     Indication: PROPHYLAXIS
     Route: 048
  8. ALOSENN [Concomitant]
     Route: 048
  9. LYRICA [Concomitant]
     Indication: PAIN
     Route: 048
  10. ROPIVACAINE HYDROCHLORIDE [Concomitant]
     Indication: PAIN
     Route: 065
  11. CARBOCAIN [Concomitant]
     Indication: PAIN
     Route: 065

REACTIONS (1)
  - DRUG PRESCRIBING ERROR [None]
